FAERS Safety Report 23752592 (Version 3)
Quarter: 2025Q1

REPORT INFORMATION
  Report Type: Spontaneous
  Country: CA (occurrence: CA)
  Receive Date: 20240417
  Receipt Date: 20250314
  Transmission Date: 20250409
  Serious: Yes (Hospitalization, Other)
  Sender: OTSUKA
  Company Number: CA-OTSUKA-2024_010675

PATIENT
  Age: 3 Decade
  Sex: Male

DRUGS (8)
  1. ARIPIPRAZOLE [Suspect]
     Active Substance: ARIPIPRAZOLE
     Indication: Bipolar disorder
     Route: 048
  2. ARIPIPRAZOLE [Suspect]
     Active Substance: ARIPIPRAZOLE
     Indication: Depressed mood
  3. ARIPIPRAZOLE [Suspect]
     Active Substance: ARIPIPRAZOLE
     Indication: Insomnia
  4. ARIPIPRAZOLE [Suspect]
     Active Substance: ARIPIPRAZOLE
     Indication: Evidence based treatment
  5. QUETIAPINE FUMARATE [Suspect]
     Active Substance: QUETIAPINE FUMARATE
     Indication: Bipolar disorder
     Dosage: 100 MG, QD (QHS) (BEDTIME)
     Route: 048
  6. QUETIAPINE FUMARATE [Suspect]
     Active Substance: QUETIAPINE FUMARATE
     Indication: Depressed mood
     Dosage: 25 MG, QD (QHS) (BEDTIME)
     Route: 048
  7. QUETIAPINE FUMARATE [Suspect]
     Active Substance: QUETIAPINE FUMARATE
     Indication: Insomnia
     Dosage: 100 MG, BID
     Route: 048
  8. QUETIAPINE FUMARATE [Suspect]
     Active Substance: QUETIAPINE FUMARATE
     Indication: Evidence based treatment
     Dosage: 25 MG, BID
     Route: 048

REACTIONS (9)
  - Nicotine dependence [Recovered/Resolved]
  - Condition aggravated [Recovered/Resolved]
  - Substance use disorder [Recovered/Resolved]
  - Drug dependence [Recovered/Resolved]
  - Apathy [Recovered/Resolved]
  - Loss of libido [Recovered/Resolved]
  - Depressed mood [Recovered/Resolved]
  - Sedation [Recovered/Resolved]
  - Off label use [Recovered/Resolved]
